FAERS Safety Report 5741264-1 (Version None)
Quarter: 2008Q2

REPORT INFORMATION
  Report Type: 
  Country: None (occurrence: None)
  Receive Date: 20080514
  Receipt Date: 20080501
  Transmission Date: 20081010
  Serious: Yes (Hospitalization)
  Sender: FDA-Public Use
  Company Number: 2008AL003057

PATIENT
  Sex: Female

DRUGS (2)
  1. DIGOXIN  (AMIDE) [Suspect]
     Dosage: 0.25 MG PO
     Route: 048
  2. BLOOD THINNER (UNSPECIFIED) [Concomitant]

REACTIONS (2)
  - CHEST PAIN [None]
  - URTICARIA [None]
